FAERS Safety Report 15434493 (Version 1)
Quarter: 2018Q3

REPORT INFORMATION
  Report Type: Spontaneous
  Country: US (occurrence: US)
  Receive Date: 20180927
  Receipt Date: 20180927
  Transmission Date: 20181010
  Serious: Yes (Hospitalization)
  Sender: FDA-Public Use
  Company Number: US-B.I. PHARMACEUTICALS,INC./RIDGEFIELD-2018-BI-047362

PATIENT
  Age: 59 Year
  Sex: Female

DRUGS (12)
  1. ECOTRIN [Concomitant]
     Active Substance: ASPIRIN
     Indication: CHEST PAIN
     Dosage: STRENGTH: 325MG; FORMULATION: CAPLET
     Route: 048
  2. METOPROLOL SUCCINATE. [Concomitant]
     Active Substance: METOPROLOL SUCCINATE
     Indication: HYPERTENSION
     Dosage: STRENGTH: 50MG; FORMULATION: CAPLET
     Route: 048
  3. ZEGERID [Concomitant]
     Active Substance: OMEPRAZOLE\SODIUM BICARBONATE
     Indication: GASTROOESOPHAGEAL REFLUX DISEASE
     Route: 065
  4. GINKO BILOBA [Concomitant]
     Active Substance: GINKGO
     Indication: SUPPLEMENTATION THERAPY
     Dosage: STRENGTH: 120MG; FORMULATION: CAPLET
     Route: 048
  5. METFORMIN [Concomitant]
     Active Substance: METFORMIN HYDROCHLORIDE
     Indication: TYPE 2 DIABETES MELLITUS
     Dosage: FORM STRENGTH: 1000MG; FORMULATION: CAPLET
     Route: 048
  6. GLIPIZIDE. [Concomitant]
     Active Substance: GLIPIZIDE
     Indication: TYPE 2 DIABETES MELLITUS
     Dosage: STRENGTH: 10MG; FORMULATION: CAPLET
     Route: 048
  7. TURMERIC CURCUMIN [Concomitant]
     Active Substance: HERBALS\TURMERIC
     Indication: SUPPLEMENTATION THERAPY
     Dosage: STRENGTH: 500MG; FORMULATION: CAPLET
     Route: 048
  8. CHOLEST?OFF [Concomitant]
     Active Substance: DIETARY SUPPLEMENT
     Indication: BLOOD CHOLESTEROL INCREASED
     Dosage: STRENGTH: 900MG; FORM: CAPLET
     Route: 048
  9. VITAMIN D3 [Concomitant]
     Active Substance: CHOLECALCIFEROL
     Indication: VITAMIN D DECREASED
     Route: 065
  10. FISH OIL OMEGA 3 [Concomitant]
     Active Substance: FISH OIL
     Indication: SUPPLEMENTATION THERAPY
     Dosage: STRENGTH: 1400/980MG
     Route: 048
  11. JARDIANCE [Suspect]
     Active Substance: EMPAGLIFLOZIN
     Indication: TYPE 2 DIABETES MELLITUS
     Dosage: ADMINISTRATION CORRECT? YES; ACTION(S) TAKEN WITH PRODUCT: DRUG WITHDRAWN
     Route: 048
     Dates: start: 201805, end: 20180828
  12. BIOTENE NOS [Concomitant]
     Active Substance: CETYLPYRIDINIUM CHLORIDE OR SODIUM FLUORIDE OR SODIUM MONOFLUOROPHOSPHATE OR GLUCOSE OXIDASE\LACTOFERRIN\LACTOPEROXIDASE BOVINE\LYSOZYME
     Indication: SUPPLEMENTATION THERAPY
     Route: 065

REACTIONS (5)
  - Constipation [Recovered/Resolved]
  - Headache [Recovered/Resolved]
  - Hepatic enzyme increased [Unknown]
  - Rectal haemorrhage [Unknown]
  - Chest pain [Unknown]

NARRATIVE: CASE EVENT DATE: 201806
